FAERS Safety Report 20741867 (Version 4)
Quarter: 2022Q2

REPORT INFORMATION
  Report Type: Report from Study
  Country: FR (occurrence: FR)
  Receive Date: 20220423
  Receipt Date: 20220530
  Transmission Date: 20220721
  Serious: Yes (Death, Hospitalization)
  Sender: FDA-Public Use
  Company Number: FR-JNJFOC-20220436761

PATIENT
  Age: 76 Year
  Sex: Female
  Weight: 64 kg

DRUGS (1)
  1. IMBRUVICA [Suspect]
     Active Substance: IBRUTINIB
     Indication: Mantle cell lymphoma
     Route: 048
     Dates: start: 20170703

REACTIONS (5)
  - Cholangitis [Fatal]
  - Femur fracture [Fatal]
  - Septic shock [Fatal]
  - Fall [Fatal]
  - Pneumonia [Fatal]

NARRATIVE: CASE EVENT DATE: 20211112
